FAERS Safety Report 7725646-4 (Version None)
Quarter: 2011Q3

REPORT INFORMATION
  Report Type: 
  Country: None (occurrence: None)
  Receive Date: 20110902
  Receipt Date: 20110826
  Transmission Date: 20111222
  Serious: Yes (Death)
  Sender: FDA-Public Use
  Company Number: FR-ASTELLAS-2011US005467

PATIENT
  Sex: Female

DRUGS (11)
  1. FLUTICASONE PROPIONATE [Concomitant]
     Indication: MEDIASTINITIS
     Dosage: UNK
     Route: 065
     Dates: start: 20110428
  2. AMOXICILLIN AND CLAVULANATE POTASSIUM [Concomitant]
     Indication: MEDIASTINITIS
     Dosage: UNK
     Dates: start: 20110428
  3. SPIRIVA [Concomitant]
     Indication: MEDIASTINITIS
     Dosage: UNK
     Route: 065
     Dates: start: 20110428
  4. TOLEXINE [Concomitant]
     Indication: MEDIASTINITIS
     Dosage: UNK
     Route: 065
     Dates: start: 20110428
  5. TARCEVA [Suspect]
     Indication: LUNG ADENOCARCINOMA
     Dosage: 150 MG, UID/QD
     Route: 048
     Dates: start: 20110422, end: 20110611
  6. CELLUVISC [Concomitant]
     Indication: MEDIASTINITIS
     Dosage: UNK
     Route: 065
  7. MUCOMYST [Concomitant]
     Indication: MEDIASTINITIS
     Dosage: UNK
     Route: 065
  8. SPASFON [Concomitant]
     Indication: MEDIASTINITIS
     Dosage: UNK
     Route: 065
  9. NEXIUM [Concomitant]
     Indication: MEDIASTINITIS
     Dosage: UNK
     Route: 065
  10. PROTIFAR [Concomitant]
     Indication: MEDIASTINITIS
     Dosage: UNK
     Route: 065
  11. INNOHEP [Suspect]
     Indication: SUPERIOR VENA CAVA SYNDROME
     Dosage: 0.5 ML, UID/QD
     Route: 058
     Dates: start: 20110428, end: 20110611

REACTIONS (2)
  - HAEMOPTYSIS [None]
  - NEOPLASM PROGRESSION [None]
